FAERS Safety Report 7982254-8 (Version None)
Quarter: 2011Q4

REPORT INFORMATION
  Report Type: 
  Country: None (occurrence: None)
  Receive Date: 20111215
  Receipt Date: 20111215
  Transmission Date: 20120403
  Serious: Yes (Hospitalization)
  Sender: FDA-Public Use
  Company Number: None

PATIENT
  Sex: Female

DRUGS (1)
  1. AMIODARONE HCL [Suspect]
     Indication: ATRIAL FIBRILLATION
     Dosage: 400 MG -2 TABLETS-
     Route: 048
     Dates: start: 20111206, end: 20111212

REACTIONS (6)
  - DECREASED APPETITE [None]
  - VOMITING [None]
  - HEPATITIS ACUTE [None]
  - ABDOMINAL PAIN UPPER [None]
  - PANCREATITIS [None]
  - NAUSEA [None]
